FAERS Safety Report 13554488 (Version 2)
Quarter: 2017Q3

REPORT INFORMATION
  Report Type: Report from Study
  Country: None (occurrence: NL)
  Receive Date: 20170517
  Receipt Date: 20170708
  Transmission Date: 20171127
  Serious: Yes (Hospitalization)
  Sender: FDA-Public Use
  Company Number: NL-ABBVIE-17P-114-1974820-00

PATIENT
  Age: 79 Year
  Sex: Female
  Weight: 60 kg

DRUGS (1)
  1. DUODOPA [Suspect]
     Active Substance: CARBIDOPA\LEVODOPA
     Indication: PARKINSON^S DISEASE
     Dosage: MD 3.3, CD 2.0, ED 0.6
     Route: 050
     Dates: start: 200605, end: 20170527

REACTIONS (4)
  - Myelopathy [Unknown]
  - Fall [Unknown]
  - Drug effect decreased [Unknown]
  - Quadriparesis [Unknown]

NARRATIVE: CASE EVENT DATE: 201604
